FAERS Safety Report 9613868 (Version 1)
Quarter: 2013Q4

REPORT INFORMATION
  Report Type: Spontaneous
  Country: US (occurrence: US)
  Receive Date: 20131010
  Receipt Date: 20131010
  Transmission Date: 20140711
  Serious: No
  Sender: FDA-Public Use
  Company Number: US-TEVA-436962USA

PATIENT
  Age: 30 Year
  Sex: Female
  Weight: 54.03 kg

DRUGS (4)
  1. PARAGARD 380A [Suspect]
     Indication: CONTRACEPTION
     Route: 015
     Dates: start: 201109, end: 201307
  2. PARAGARD 380A [Suspect]
     Route: 015
     Dates: start: 20130904, end: 20131007
  3. WELLBUTRIN [Concomitant]
     Indication: ANXIETY
     Dosage: 300 MILLIGRAM DAILY;
     Route: 048
  4. WELLBUTRIN [Concomitant]
     Indication: DEPRESSION

REACTIONS (2)
  - Device expulsion [Recovered/Resolved]
  - Abdominal pain [Not Recovered/Not Resolved]
